FAERS Safety Report 10099241 (Version 2)
Quarter: 2014Q2

REPORT INFORMATION
  Report Type: Spontaneous
  Country: GB (occurrence: GB)
  Receive Date: 20140423
  Receipt Date: 20140520
  Transmission Date: 20141212
  Serious: Yes (Other)
  Sender: FDA-Public Use
  Company Number: GB-WATSON-2014-07806

PATIENT
  Age: 57 Year
  Sex: Female
  Weight: 72 kg

DRUGS (3)
  1. MIRTAZAPINE (UNKNOWN) [Suspect]
     Indication: DEPRESSION
     Dosage: 45 MG, UNK
     Route: 048
     Dates: start: 201402, end: 201402
  2. VENLALIC [Suspect]
     Indication: DEPRESSION
     Dosage: 225 MG, UNKNOWN
     Route: 048
     Dates: start: 20100611, end: 20140201
  3. METRONIDAZOLE [Concomitant]
     Indication: BACTERIAL INFECTION
     Dosage: UNK
     Route: 065

REACTIONS (15)
  - Serotonin syndrome [Recovered/Resolved]
  - Muscle spasms [Recovered/Resolved]
  - Diarrhoea [Recovered/Resolved]
  - Crying [Recovered/Resolved]
  - Suicidal ideation [Recovered/Resolved]
  - Anger [Recovered/Resolved]
  - Paraesthesia [Unknown]
  - Nightmare [Unknown]
  - Abdominal discomfort [Unknown]
  - Insomnia [Unknown]
  - Mania [Unknown]
  - Palpitations [Recovered/Resolved]
  - Emotional distress [Unknown]
  - Sleep terror [Unknown]
  - Drug ineffective [Unknown]
